FAERS Safety Report 13182013 (Version 3)
Quarter: 2017Q3

REPORT INFORMATION
  Report Type: Spontaneous
  Country: US (occurrence: US)
  Receive Date: 20170202
  Receipt Date: 20170724
  Transmission Date: 20171127
  Serious: No
  Sender: FDA-Public Use
  Company Number: US-IMPAX LABORATORIES, INC-2016-IPXL-02261

PATIENT
  Age: 78 Year
  Sex: Male
  Weight: 58 kg

DRUGS (9)
  1. CLONAZEPAM. [Concomitant]
     Active Substance: CLONAZEPAM
     Indication: RESTLESS LEGS SYNDROME
     Dosage: UNK
     Route: 065
  2. RYTARY [Suspect]
     Active Substance: CARBIDOPA\LEVODOPA
     Indication: PARKINSON^S DISEASE
     Dosage: 36.25/145 MG; THREE CAPSULES THREE TIMES A DAY
     Route: 048
     Dates: start: 201611
  3. RYTARY [Suspect]
     Active Substance: CARBIDOPA\LEVODOPA
     Dosage: 48.75/195 MG TWO CAPSULES, 4 TIMES A DAY
     Route: 048
     Dates: end: 20170104
  4. CARBIDOPA-LEVODOPA ER [Suspect]
     Active Substance: CARBIDOPA\LEVODOPA
     Indication: PARKINSON^S DISEASE
     Dosage: 50/200 MG, 5 /DAY
     Route: 065
  5. CARBIDOPA/LEVODOPA ODT [Concomitant]
     Indication: PARKINSON^S DISEASE
     Dosage: 25/100 MG; UNK
     Route: 048
  6. DONEPEZIL. [Concomitant]
     Active Substance: DONEPEZIL
     Indication: RESTLESS LEGS SYNDROME
     Dosage: UNK
     Route: 065
  7. RYTARY [Suspect]
     Active Substance: CARBIDOPA\LEVODOPA
     Dosage: 36.25/145 MG; 4 CAPSULES IN THE MORNING AND THREE TABLETS THE OTHER TWO TIMES A DAY
     Route: 048
     Dates: start: 201611
  8. DONEPEZIL. [Concomitant]
     Active Substance: DONEPEZIL
     Indication: POOR QUALITY SLEEP
  9. CLONAZEPAM. [Concomitant]
     Active Substance: CLONAZEPAM
     Indication: POOR QUALITY SLEEP

REACTIONS (10)
  - Tremor [Recovering/Resolving]
  - Incontinence [Recovering/Resolving]
  - Visual impairment [Recovering/Resolving]
  - Feeling cold [Recovering/Resolving]
  - Asthenia [Recovering/Resolving]
  - Palpitations [Recovering/Resolving]
  - Chills [Recovering/Resolving]
  - Dyspnoea [Recovering/Resolving]
  - Therapeutic response shortened [Unknown]
  - Muscular weakness [Recovering/Resolving]

NARRATIVE: CASE EVENT DATE: 2016
